FAERS Safety Report 8146489-6 (Version None)
Quarter: 2012Q1

REPORT INFORMATION
  Report Type: 
  Country: None (occurrence: None)
  Receive Date: 20120217
  Receipt Date: 20120206
  Transmission Date: 20120608
  Serious: Yes (Other)
  Sender: FDA-Public Use
  Company Number: US-ROCHE-1037857

PATIENT

DRUGS (6)
  1. EL625 (P53 ANTISENSE OLIGONUCLEOTIDE) [Suspect]
     Indication: CHRONIC LYMPHOCYTIC LEUKAEMIA
  2. FLUDARABINE PHOSPHATE [Suspect]
     Indication: CHRONIC LYMPHOCYTIC LEUKAEMIA
     Dosage: OVER 30 MIN ON DAYS 2-4, 28-DAY CYCLE
  3. MABTHERA [Suspect]
     Indication: CHRONIC LYMPHOCYTIC LEUKAEMIA
     Dosage: DAY 2, 28-DAY CYCLE.
     Route: 041
  4. CYCLOPHOSPHAMIDE [Suspect]
     Indication: CHRONIC LYMPHOCYTIC LEUKAEMIA
     Dosage: OVER 1 HR ON DAYS 2-4, 28-DAY CYCLE
     Route: 041
  5. ALLOPURINOL [Concomitant]
     Indication: PROPHYLAXIS
  6. SULFAMETHOXAZOLE AND TRIMETHOPRIM [Concomitant]
     Indication: PROPHYLAXIS

REACTIONS (18)
  - LEUKOPENIA [None]
  - PAIN [None]
  - NEUTROPENIA [None]
  - FATIGUE [None]
  - DYSPNOEA [None]
  - SYNCOPE [None]
  - NEPHROPATHY TOXIC [None]
  - THROMBOCYTOPENIA [None]
  - ANAEMIA [None]
  - INFECTION [None]
  - HYPERGLYCAEMIA [None]
  - NEUROTOXICITY [None]
  - FEBRILE NEUTROPENIA [None]
  - CARDIOTOXICITY [None]
  - GASTROINTESTINAL TOXICITY [None]
  - HEPATOBILIARY DISEASE [None]
  - HAEMOLYTIC ANAEMIA [None]
  - TOXICITY TO VARIOUS AGENTS [None]
